FAERS Safety Report 13985761 (Version 1)
Quarter: 2017Q3

REPORT INFORMATION
  Report Type: Spontaneous
  Country: US (occurrence: US)
  Receive Date: 20170919
  Receipt Date: 20170919
  Transmission Date: 20171128
  Serious: No
  Sender: FDA-Public Use
  Company Number: US-ASTRAZENECA-2017SE91830

PATIENT
  Sex: Male
  Weight: 147 kg

DRUGS (3)
  1. BYDUREON [Suspect]
     Active Substance: EXENATIDE
     Indication: TYPE 2 DIABETES MELLITUS
     Route: 058
  2. REPATHA [Concomitant]
     Active Substance: EVOLOCUMAB
     Indication: BLOOD CHOLESTEROL DECREASED
     Dosage: BATTERY-OPERATED INFUSER MONTHLY
  3. FARXIGA [Suspect]
     Active Substance: DAPAGLIFLOZIN PROPANEDIOL
     Indication: TYPE 2 DIABETES MELLITUS
     Route: 048

REACTIONS (8)
  - Erythema [Recovered/Resolved]
  - Asthenia [Recovered/Resolved]
  - Chills [Recovered/Resolved]
  - Peripheral swelling [Recovered/Resolved]
  - Skin irritation [Recovered/Resolved]
  - Blood glucose increased [Recovered/Resolved]
  - Feeling cold [Recovered/Resolved]
  - Somnolence [Recovered/Resolved]
